FAERS Safety Report 6427966-2 (Version None)
Quarter: 2009Q4

REPORT INFORMATION
  Report Type: 
  Country: None (occurrence: None)
  Receive Date: 20091105
  Receipt Date: 20091101
  Transmission Date: 20100525
  Serious: Yes (Death)
  Sender: FDA-Public Use
  Company Number: PHHY2009IL47606

PATIENT
  Age: 56 Year
  Sex: Male

DRUGS (1)
  1. SANDOSTATIN LAR [Suspect]
     Indication: THYMOMA
     Dosage: 30 MG EVERY 4 WEEKS
     Dates: start: 20090301

REACTIONS (1)
  - PULMONARY EMBOLISM [None]
